FAERS Safety Report 9581305 (Version 6)
Quarter: 2014Q2

REPORT INFORMATION
  Report Type: Spontaneous
  Country: US (occurrence: US)
  Receive Date: 20131002
  Receipt Date: 20140606
  Transmission Date: 20141212
  Serious: Yes (Death, Other)
  Sender: FDA-Public Use
  Company Number: US-PFIZER INC-2013278239

PATIENT
  Age: 74 Year
  Sex: Male

DRUGS (14)
  1. SUTENT [Suspect]
     Indication: RENAL CANCER METASTATIC
     Dosage: 50 MG, CYCLIC (50 MG 4 WEEKS ON, 2 WEEKS OFF)
     Route: 048
     Dates: start: 20130710
  2. CARBOPLATIN [Suspect]
     Indication: LUNG NEOPLASM MALIGNANT
     Dosage: 135 MG, WEEKLY
     Dates: start: 20131113, end: 20131218
  3. TAXOL [Suspect]
     Indication: LUNG NEOPLASM MALIGNANT
     Dosage: 180 MG, WEEKLY (OFF SUTENT 1 DAY BEFORE CHEMO X 3 DAYS)
     Dates: start: 20131113, end: 20131218
  4. FISH OIL [Concomitant]
     Dosage: UNK
  5. PRILOSEC [Concomitant]
     Dosage: UNK
  6. OXYCODONE HYDROCHLORIDE [Concomitant]
     Dosage: UNK
  7. NORVASC [Concomitant]
     Dosage: UNK
  8. METOPROLOL SUCCINATE [Concomitant]
     Dosage: UNK
  9. ASPIRIN [Concomitant]
  10. ATIVAN [Concomitant]
  11. COMPAZINE [Concomitant]
  12. DEXAMETHASONE [Concomitant]
  13. FOLIC ACID [Concomitant]
  14. MEGACE [Concomitant]
     Route: 048

REACTIONS (12)
  - Second primary malignancy [Fatal]
  - Lung cancer metastatic [Fatal]
  - Disease progression [Unknown]
  - Renal cancer metastatic [Unknown]
  - Depression [Recovering/Resolving]
  - Asthenia [Not Recovered/Not Resolved]
  - Decreased appetite [Not Recovered/Not Resolved]
  - Weight decreased [Not Recovered/Not Resolved]
  - Failure to thrive [Unknown]
  - Hypophagia [Unknown]
  - Dehydration [Unknown]
  - Fatigue [Unknown]
